FAERS Safety Report 19122957 (Version 1)
Quarter: 2021Q2

REPORT INFORMATION
  Report Type: Spontaneous
  Country: IT (occurrence: IT)
  Receive Date: 20210412
  Receipt Date: 20210412
  Transmission Date: 20210717
  Serious: Yes (Other)
  Sender: FDA-Public Use
  Company Number: IT-PFIZER INC-2021351679

PATIENT
  Age: 45 Year
  Sex: Male

DRUGS (3)
  1. CISPLATIN. [Suspect]
     Active Substance: CISPLATIN
     Indication: UNDIFFERENTIATED NASOPHARYNGEAL CARCINOMA
     Dosage: 30 MG/M2 ON DAYS 1 TO 3 (REPEATED AFTER 23 DAYS)
     Dates: start: 199312
  2. DOXORUBICIN HCL [Suspect]
     Active Substance: DOXORUBICIN HYDROCHLORIDE
     Indication: UNDIFFERENTIATED NASOPHARYNGEAL CARCINOMA
     Dosage: 50 MG/M2 ON DAY1 (REPEATED AFTER 23 DAYS)
     Dates: start: 199312
  3. BLEOMYCIN [Suspect]
     Active Substance: BLEOMYCIN SULFATE
     Indication: UNDIFFERENTIATED NASOPHARYNGEAL CARCINOMA
     Dosage: 10 MG/M2 ON DAYS 1 AND 8 (REPEATED AFTER 23 DAYS)
     Dates: start: 199312

REACTIONS (1)
  - Pneumocephalus [Unknown]

NARRATIVE: CASE EVENT DATE: 199401
